FAERS Safety Report 4970219-X (Version None)
Quarter: 2006Q2

REPORT INFORMATION
  Report Type: 
  Country: None (occurrence: None)
  Receive Date: 20060412
  Receipt Date: 20060331
  Transmission Date: 20061013
  Serious: Yes (Life-Threatening, Hospitalization, Other)
  Sender: FDA-Public Use
  Company Number: NL-JNJFOC-20060300755

PATIENT
  Sex: Female
  Weight: 3.5 kg

DRUGS (1)
  1. DAKTARIN [Suspect]
     Route: 048

REACTIONS (5)
  - INJURY ASPHYXIATION [None]
  - INTENTIONAL DRUG MISUSE [None]
  - OBSTRUCTIVE AIRWAYS DISORDER [None]
  - OESOPHAGEAL OBSTRUCTION [None]
  - VOMITING [None]
